FAERS Safety Report 9895512 (Version 1)
Quarter: 2014Q1

REPORT INFORMATION
  Report Type: Spontaneous
  Country: US (occurrence: US)
  Receive Date: 20140213
  Receipt Date: 20140213
  Transmission Date: 20141002
  Serious: No
  Sender: FDA-Public Use
  Company Number: US-BRISTOL-MYERS SQUIBB COMPANY-19431253

PATIENT
  Age: 56 Year
  Sex: Male

DRUGS (9)
  1. ABATACEPT SUBQ INJECTION 125MG/ML [Suspect]
     Route: 058
  2. METOPROLOL [Concomitant]
     Dosage: TABS ER
  3. ALVESCO [Concomitant]
  4. FISH OIL [Concomitant]
     Dosage: CAPS
  5. FLAXSEED [Concomitant]
     Dosage: CAPS
  6. BORAGE OIL [Concomitant]
     Dosage: CAPS
  7. QUINAPRIL [Concomitant]
     Dosage: TABS
  8. FOLIC ACID [Concomitant]
     Dosage: TABS
  9. PEPCID [Concomitant]
     Dosage: TABS

REACTIONS (1)
  - Injection site pain [Recovered/Resolved]
